FAERS Safety Report 17376091 (Version 7)
Quarter: 2020Q2

REPORT INFORMATION
  Report Type: Report from Study
  Country: CO (occurrence: CO)
  Receive Date: 20200206
  Receipt Date: 20200528
  Transmission Date: 20200713
  Serious: Yes (Death, Hospitalization, Other)
  Sender: FDA-Public Use
  Company Number: CO-ACTELION-A-CH2020-201584

PATIENT
  Age: 79 Year
  Sex: Male
  Weight: 60 kg

DRUGS (3)
  1. MORPHINE [Suspect]
     Active Substance: MORPHINE
     Indication: PRODUCT USED FOR UNKNOWN INDICATION
     Route: 065
  2. OPSUMIT [Suspect]
     Active Substance: MACITENTAN
     Indication: PULMONARY ARTERIAL HYPERTENSION
     Dosage: 10 MG, QD
     Route: 048
     Dates: start: 20200128
  3. OXYGEN. [Concomitant]
     Active Substance: OXYGEN

REACTIONS (18)
  - Death [Fatal]
  - Pyrexia [Not Recovered/Not Resolved]
  - Dependence on oxygen therapy [Unknown]
  - Tuberculosis [Not Recovered/Not Resolved]
  - Pain [Not Recovered/Not Resolved]
  - Choking sensation [Not Recovered/Not Resolved]
  - Fluid retention [Not Recovered/Not Resolved]
  - Penis disorder [Unknown]
  - Hospitalisation [Not Recovered/Not Resolved]
  - Dysuria [Unknown]
  - Mycobacterium tuberculosis complex test positive [Not Recovered/Not Resolved]
  - Mobility decreased [Not Recovered/Not Resolved]
  - Scab [Not Recovered/Not Resolved]
  - Decreased appetite [Not Recovered/Not Resolved]
  - Malaise [Unknown]
  - Pulmonary oedema [Not Recovered/Not Resolved]
  - Dementia [Unknown]
  - Oedema peripheral [Not Recovered/Not Resolved]

NARRATIVE: CASE EVENT DATE: 202002
